FAERS Safety Report 22140521 (Version 1)
Quarter: 2023Q1

REPORT INFORMATION
  Report Type: Spontaneous
  Country: IT (occurrence: IT)
  Receive Date: 20230327
  Receipt Date: 20230327
  Transmission Date: 20230417
  Serious: Yes (Other)
  Sender: FDA-Public Use
  Company Number: IT-MLMSERVICE-20230309-4153308-1

PATIENT
  Age: 76 Year
  Sex: Female

DRUGS (16)
  1. FLUOROURACIL [Suspect]
     Active Substance: FLUOROURACIL
     Indication: Metastases to lymph nodes
     Dosage: 6 CYCLES ADMINISTERED
     Dates: start: 201701, end: 2017
  2. OXALIPLATIN [Suspect]
     Active Substance: OXALIPLATIN
     Indication: Metastases to pleura
     Dosage: 6 CYCLES ADMINISTERED
     Dates: start: 201701, end: 2017
  3. LEUCOVORIN [Suspect]
     Active Substance: LEUCOVORIN
     Indication: Metastases to pleura
     Dosage: 6 CYCLES ADMINISTERED
     Dates: start: 201701, end: 2017
  4. PANITUMUMAB [Suspect]
     Active Substance: PANITUMUMAB
     Indication: Adenocarcinoma of colon
     Dosage: 6 CYCLES ADMINISTERED
     Dates: start: 201701, end: 2017
  5. LEUCOVORIN [Suspect]
     Active Substance: LEUCOVORIN
     Indication: Adenocarcinoma of colon
     Dosage: 6 CYCLES ADMINISTERED
     Dates: start: 201701, end: 2017
  6. FLUOROURACIL [Suspect]
     Active Substance: FLUOROURACIL
     Indication: Adenocarcinoma of colon
     Dosage: 6 CYCLES ADMINISTERED
     Dates: start: 201701, end: 2017
  7. OXALIPLATIN [Suspect]
     Active Substance: OXALIPLATIN
     Indication: Metastases to skin
     Dosage: 6 CYCLES ADMINISTERED
     Dates: start: 201701, end: 2017
  8. OXALIPLATIN [Suspect]
     Active Substance: OXALIPLATIN
     Indication: Metastases to lymph nodes
     Dosage: 6 CYCLES ADMINISTERED
     Dates: start: 201701, end: 2017
  9. PANITUMUMAB [Suspect]
     Active Substance: PANITUMUMAB
     Indication: Metastases to lymph nodes
     Dosage: 6 CYCLES ADMINISTERED
     Dates: start: 201701, end: 2017
  10. PANITUMUMAB [Suspect]
     Active Substance: PANITUMUMAB
     Indication: Metastases to skin
     Dosage: 6 CYCLES ADMINISTERED
     Dates: start: 201701, end: 2017
  11. LEUCOVORIN [Suspect]
     Active Substance: LEUCOVORIN
     Indication: Metastases to skin
     Dosage: 6 CYCLES ADMINISTERED
     Dates: start: 201701, end: 2017
  12. LEUCOVORIN [Suspect]
     Active Substance: LEUCOVORIN
     Indication: Metastases to lymph nodes
     Dosage: 6 CYCLES ADMINISTERED
     Dates: start: 201701, end: 2017
  13. FLUOROURACIL [Suspect]
     Active Substance: FLUOROURACIL
     Indication: Metastases to pleura
     Dosage: 6 CYCLES ADMINISTERED
     Dates: start: 201701, end: 2017
  14. FLUOROURACIL [Suspect]
     Active Substance: FLUOROURACIL
     Indication: Metastases to skin
     Dosage: 6 CYCLES ADMINISTERED
     Dates: start: 201701, end: 2017
  15. OXALIPLATIN [Suspect]
     Active Substance: OXALIPLATIN
     Indication: Adenocarcinoma of colon
     Dosage: 6 CYCLES ADMINISTERED
     Dates: start: 201701, end: 2017
  16. PANITUMUMAB [Suspect]
     Active Substance: PANITUMUMAB
     Indication: Metastases to pleura
     Dosage: 6 CYCLES ADMINISTERED
     Dates: start: 201701, end: 2017

REACTIONS (3)
  - Neutropenia [Unknown]
  - Neuropathy peripheral [Unknown]
  - Rash [Unknown]

NARRATIVE: CASE EVENT DATE: 20170101
